FAERS Safety Report 9696532 (Version 2)
Quarter: 2014Q1

REPORT INFORMATION
  Report Type: Spontaneous
  Country: US (occurrence: US)
  Receive Date: 20131119
  Receipt Date: 20140131
  Transmission Date: 20141002
  Serious: Yes (Hospitalization)
  Sender: FDA-Public Use
  Company Number: US-BAXTER-2013BAX045037

PATIENT
  Age: 61 Year
  Sex: Male
  Weight: 104 kg

DRUGS (10)
  1. RIXUBIS [Suspect]
     Indication: FACTOR IX DEFICIENCY
     Dosage: 6122 UNITS +/- 10% DAILY X 4
     Route: 042
     Dates: start: 20131029, end: 20131031
  2. RIXUBIS [Suspect]
     Indication: FACTOR IX DEFICIENCY
     Dosage: 6122 UNITS +/- 10% DAILY X 4
     Route: 042
     Dates: start: 20131029, end: 20131031
  3. LITHIUM CARBONATE [Suspect]
     Indication: PRODUCT USED FOR UNKNOWN INDICATION
     Route: 048
     Dates: end: 20131101
  4. ATENOLOL [Concomitant]
     Indication: PRODUCT USED FOR UNKNOWN INDICATION
     Route: 048
  5. BUPROPION HCL [Concomitant]
     Indication: PRODUCT USED FOR UNKNOWN INDICATION
     Route: 048
  6. LEVOTHYROXINE [Concomitant]
     Indication: PRODUCT USED FOR UNKNOWN INDICATION
     Route: 048
  7. PRILOSEC [Concomitant]
     Indication: PRODUCT USED FOR UNKNOWN INDICATION
     Route: 048
  8. SIMVASTATIN [Concomitant]
     Indication: PRODUCT USED FOR UNKNOWN INDICATION
     Route: 048
  9. BUSPIRONE [Concomitant]
     Indication: PRODUCT USED FOR UNKNOWN INDICATION
     Route: 048
  10. BUSPIRONE [Concomitant]
     Route: 048

REACTIONS (11)
  - Hypersensitivity [Recovered/Resolved]
  - Pruritus [Recovered/Resolved]
  - Dyspnoea [Recovered/Resolved]
  - Feeling hot [Recovered/Resolved]
  - Claustrophobia [Recovered/Resolved]
  - Gait disturbance [Recovered/Resolved]
  - Tremor [Recovering/Resolving]
  - Neurological symptom [Recovering/Resolving]
  - Toxicity to various agents [Recovered/Resolved]
  - Renal failure acute [Unknown]
  - Cognitive disorder [Recovering/Resolving]
